FAERS Safety Report 7061882-0 (Version None)
Quarter: 2010Q4

REPORT INFORMATION
  Report Type: 
  Country: None (occurrence: None)
  Receive Date: 20101026
  Receipt Date: 20101019
  Transmission Date: 20110411
  Serious: Yes (Hospitalization)
  Sender: FDA-Public Use
  Company Number: US-US-EMD SERONO, INC.-232567J09USA

PATIENT
  Sex: Female
  Weight: 91 kg

DRUGS (7)
  1. REBIF [Suspect]
     Indication: MULTIPLE SCLEROSIS
     Route: 058
     Dates: start: 20081008, end: 20081201
  2. REBIF [Suspect]
     Route: 058
     Dates: start: 20081201
  3. REBIF [Suspect]
     Route: 058
  4. VITAMIN D [Concomitant]
     Indication: MULTIPLE SCLEROSIS
  5. FISH OIL [Concomitant]
     Indication: SUPPLEMENTATION THERAPY
  6. PREVACID [Concomitant]
     Indication: GASTROOESOPHAGEAL REFLUX DISEASE
  7. UNSPECIFIED ALLERGY MEDICATION [Concomitant]
     Indication: HYPERSENSITIVITY

REACTIONS (5)
  - BREAST CYST [None]
  - INJECTION SITE ERYTHEMA [None]
  - LIVER FUNCTION TEST ABNORMAL [None]
  - MIGRAINE [None]
  - OVARIAN CYST [None]
